FAERS Safety Report 23692764 (Version 1)
Quarter: 2024Q2

REPORT INFORMATION
  Report Type: Spontaneous
  Country: CN (occurrence: CN)
  Receive Date: 20240401
  Receipt Date: 20240401
  Transmission Date: 20240716
  Serious: Yes (Hospitalization)
  Sender: FDA-Public Use
  Company Number: CN-002147023-NVSC2024CN068421

PATIENT
  Age: 82 Year
  Sex: Female
  Weight: 58 kg

DRUGS (2)
  1. SACUBITRIL\VALSARTAN [Suspect]
     Active Substance: SACUBITRIL\VALSARTAN
     Indication: Hypertension
     Dosage: 100 MG, QD
     Route: 065
  2. SACUBITRIL\VALSARTAN [Suspect]
     Active Substance: SACUBITRIL\VALSARTAN
     Dosage: 200 MG, QD
     Route: 048
     Dates: start: 20240129, end: 20240131

REACTIONS (9)
  - Swelling face [Recovering/Resolving]
  - Skin tightness [Unknown]
  - Facial discomfort [Unknown]
  - Angioedema [Unknown]
  - Chest discomfort [Unknown]
  - Tachypnoea [Unknown]
  - Brain natriuretic peptide abnormal [Unknown]
  - Oedema peripheral [Unknown]
  - Cardiac failure [Unknown]

NARRATIVE: CASE EVENT DATE: 20240131
